FAERS Safety Report 8597003-2 (Version None)
Quarter: 2012Q3

REPORT INFORMATION
  Report Type: 
  Country: None (occurrence: None)
  Receive Date: 20120816
  Receipt Date: 20120813
  Transmission Date: 20120928
  Serious: Yes (Hospitalization)
  Sender: FDA-Public Use
  Company Number: DE-AMGEN-DEUSP2012050671

PATIENT
  Age: 39 Year

DRUGS (13)
  1. BLEOMYCIN SULFATE [Concomitant]
     Indication: HODGKIN'S DISEASE
     Dosage: 10 MG/M2, UNK
     Dates: start: 20101103
  2. DIAZEPAM [Concomitant]
     Indication: PRODUCT USED FOR UNKNOWN INDICATION
     Dosage: 5 MG, UNK
     Route: 042
  3. ADRIAMYCIN PFS [Concomitant]
     Indication: HODGKIN'S DISEASE
     Dosage: 35 MG/M2, UNK
     Dates: start: 20101103
  4. PROCARBAZINE HYDROCHLORIDE [Concomitant]
     Indication: HODGKIN'S DISEASE
     Dosage: 100 MG/M2, UNK
     Dates: start: 20101103
  5. EMEND [Concomitant]
     Dosage: 125 MG, UNK
  6. VINCRISTINE [Concomitant]
     Indication: HODGKIN'S DISEASE
     Dosage: 1.4 MG/M2, UNK
     Dates: start: 20101103
  7. ETOPOSIDE [Concomitant]
     Indication: HODGKIN'S DISEASE
     Dosage: 200 MG/M2, UNK
     Dates: start: 20101103
  8. PREDNISONE TAB [Concomitant]
     Indication: HODGKIN'S DISEASE
     Dosage: 40 MG/M2, UNK
     Dates: start: 20101103
  9. MESNA [Concomitant]
     Indication: PRODUCT USED FOR UNKNOWN INDICATION
     Dosage: 2000 MG, QD
     Route: 048
  10. LEVOFLOXACIN [Concomitant]
     Indication: PRODUCT USED FOR UNKNOWN INDICATION
     Dosage: 500 MG, UNK
     Route: 048
  11. NEULASTA [Suspect]
     Indication: CHEMOTHERAPY
     Dosage: 6 MG, UNK
     Route: 058
     Dates: start: 20101106
  12. CYCLOPHOSPHAMIDE [Concomitant]
     Indication: HODGKIN'S DISEASE
     Dosage: 1250 MG/M2, UNK
     Dates: start: 20101103
  13. EMEND [Concomitant]
     Indication: PRODUCT USED FOR UNKNOWN INDICATION
     Dosage: 80 MG, UNK
     Route: 048

REACTIONS (4)
  - CHEST PAIN [None]
  - FEBRILE INFECTION [None]
  - ANGINA PECTORIS [None]
  - BONE PAIN [None]
